FAERS Safety Report 18140413 (Version 1)
Quarter: 2020Q3

REPORT INFORMATION
  Report Type: Spontaneous
  Country: JP (occurrence: JP)
  Receive Date: 20200812
  Receipt Date: 20200812
  Transmission Date: 20201103
  Serious: Yes (Other)
  Sender: FDA-Public Use
  Company Number: JP-UCBSA-2020029396

PATIENT
  Sex: Female

DRUGS (2)
  1. ZINC CHLORIDE [Concomitant]
     Active Substance: ZINC CHLORIDE
     Indication: PRODUCT USED FOR UNKNOWN INDICATION
     Dosage: UNK
  2. NEUPRO [Suspect]
     Active Substance: ROTIGOTINE
     Indication: RESTLESS LEGS SYNDROME
     Dosage: STRENGTH: 1MG/24HR
     Route: 062

REACTIONS (8)
  - Seizure [Recovering/Resolving]
  - Wrong technique in product usage process [Unknown]
  - Tinnitus [Not Recovered/Not Resolved]
  - Therapy cessation [Unknown]
  - Adverse reaction [Recovering/Resolving]
  - Treatment noncompliance [Unknown]
  - Malaise [Recovering/Resolving]
  - Flatulence [Recovering/Resolving]
